FAERS Safety Report 7221214-1 (Version None)
Quarter: 2011Q1

REPORT INFORMATION
  Report Type: 
  Country: None (occurrence: None)
  Receive Date: 20110103
  Receipt Date: 20101217
  Transmission Date: 20110831
  Serious: Yes (Other)
  Sender: FDA-Public Use
  Company Number: 014788

PATIENT
  Sex: Female
  Weight: 95 kg

DRUGS (1)
  1. KEPPRA [Suspect]
     Indication: MYOCLONIC EPILEPSY
     Dosage: 500 MG QD ORAL
     Route: 048
     Dates: start: 20061201

REACTIONS (4)
  - DRUG EXPOSURE DURING PREGNANCY [None]
  - PREGNANCY [None]
  - CAESAREAN SECTION [None]
  - AMNIOCENTESIS ABNORMAL [None]
